FAERS Safety Report 6279660-9 (Version None)
Quarter: 2009Q3

REPORT INFORMATION
  Report Type: 
  Country: None (occurrence: None)
  Receive Date: 20090723
  Receipt Date: 20090715
  Transmission Date: 20100115
  Serious: Yes (Other)
  Sender: FDA-Public Use
  Company Number: JP-BAYER-200912462BYL

PATIENT
  Age: 54 Year
  Sex: Male

DRUGS (4)
  1. NEXAVAR [Suspect]
     Indication: HEPATIC NEOPLASM MALIGNANT
     Route: 048
     Dates: start: 20081101
  2. NEXAVAR [Suspect]
     Route: 048
  3. INTERFERON [Concomitant]
     Route: 065
     Dates: start: 20081101
  4. INTERFERON [Concomitant]
     Route: 065

REACTIONS (3)
  - PANCYTOPENIA [None]
  - PLATELET COUNT DECREASED [None]
  - WHITE BLOOD CELL COUNT DECREASED [None]
